FAERS Safety Report 15286798 (Version 1)
Quarter: 2018Q3

REPORT INFORMATION
  Report Type: Report from Study
  Country: DE (occurrence: DE)
  Receive Date: 20180816
  Receipt Date: 20180816
  Transmission Date: 20181010
  Serious: Yes (Hospitalization, Other)
  Sender: FDA-Public Use
  Company Number: DE-GILEAD-2018-0355575

PATIENT
  Age: 34 Year
  Sex: Male
  Weight: 104 kg

DRUGS (3)
  1. MAVIRET [Concomitant]
     Active Substance: GLECAPREVIR\PIBRENTASVIR
     Indication: CHRONIC HEPATITIS C
     Dosage: 420 MG, QD
     Route: 048
     Dates: start: 20170928, end: 20171122
  2. RALTEGRAVIR. [Concomitant]
     Active Substance: RALTEGRAVIR
  3. EMTRICITABINE/TENOFOVIR ALAFENAMIDE [Suspect]
     Active Substance: EMTRICITABINE\TENOFOVIR
     Indication: HIV INFECTION
     Dosage: 1 DF, QD
     Route: 065
     Dates: start: 20170825, end: 20171206

REACTIONS (1)
  - Drug abuse [Recovering/Resolving]
